FAERS Safety Report 19052791 (Version 1)
Quarter: 2021Q1

REPORT INFORMATION
  Report Type: Report from Study
  Country: US (occurrence: US)
  Receive Date: 20210324
  Receipt Date: 20210324
  Transmission Date: 20210420
  Serious: Yes (Hospitalization)
  Sender: FDA-Public Use
  Company Number: US-ROCHE-2726600

PATIENT
  Age: 79 Year
  Sex: Male
  Weight: 58.7 kg

DRUGS (12)
  1. ATEZOLIZUMAB. [Suspect]
     Active Substance: ATEZOLIZUMAB
     Indication: NON-SMALL CELL LUNG CANCER
     Dosage: ON 20/OCT/2020, THE PATIENT RECEIVED THE MOST RECENT DOSE OF ATEZOLIZUMAB PRIOR TO THE EVENT.?ON 01/
     Route: 042
     Dates: start: 20191209
  2. ATEZOLIZUMAB. [Suspect]
     Active Substance: ATEZOLIZUMAB
     Route: 042
     Dates: start: 20201201
  3. BETAMETHASONE DIPROPIONATE. [Concomitant]
     Active Substance: BETAMETHASONE DIPROPIONATE
  4. SENNA [Concomitant]
     Active Substance: SENNA LEAF\SENNOSIDES\SENNOSIDES A AND B
  5. XL184 [Suspect]
     Active Substance: CABOZANTINIB
     Route: 048
     Dates: end: 20201107
  6. XL184 [Suspect]
     Active Substance: CABOZANTINIB
     Route: 048
     Dates: end: 20201231
  7. BISACODYL. [Concomitant]
     Active Substance: BISACODYL
  8. BACLOFEN. [Concomitant]
     Active Substance: BACLOFEN
  9. XL184 [Suspect]
     Active Substance: CABOZANTINIB
     Indication: NON-SMALL CELL LUNG CANCER
     Dosage: ON 06/NOV/2020, THE PATIENT RECEIVED THE MOST RECENT DOSE OF CABOZANTINIB PRIOR TO THE EVENT.?ON 21/
     Route: 048
     Dates: start: 20191209
  10. ASPIRIN. [Concomitant]
     Active Substance: ASPIRIN
  11. PREGABALIN. [Concomitant]
     Active Substance: PREGABALIN
  12. HYDROCODONE/ACETAMINOPHEN [Concomitant]
     Active Substance: ACETAMINOPHEN\HYDROCODONE

REACTIONS (6)
  - Drug-induced liver injury [Recovered/Resolved]
  - Abdominal pain [Recovering/Resolving]
  - Alanine aminotransferase increased [Recovered/Resolved]
  - Aspartate aminotransferase increased [Recovered/Resolved]
  - Cholecystitis [Recovered/Resolved]
  - Biliary tract disorder [Recovered/Resolved]

NARRATIVE: CASE EVENT DATE: 20201106
